FAERS Safety Report 23716703 (Version 2)
Quarter: 2025Q1

REPORT INFORMATION
  Report Type: Spontaneous
  Country: CA (occurrence: CA)
  Receive Date: 20240408
  Receipt Date: 20250306
  Transmission Date: 20250408
  Serious: Yes (Other)
  Sender: SANDOZ
  Company Number: CA-SANDOZ-SDZ2024CA036729

PATIENT
  Age: 29 Year
  Sex: Female

DRUGS (6)
  1. LEVOTHYROXINE SODIUM [Suspect]
     Active Substance: LEVOTHYROXINE SODIUM
     Indication: Hypothyroidism
     Dosage: 25 UG, QD
     Route: 065
  2. OLANZAPINE [Suspect]
     Active Substance: OLANZAPINE
     Indication: Mania
     Route: 065
  3. OLANZAPINE [Suspect]
     Active Substance: OLANZAPINE
     Route: 065
  4. QUETIAPINE [Suspect]
     Active Substance: QUETIAPINE
     Dosage: 200 MG, QD
     Route: 065
  5. QUETIAPINE [Suspect]
     Active Substance: QUETIAPINE
     Indication: Bipolar I disorder
     Route: 065
  6. QUETIAPINE [Suspect]
     Active Substance: QUETIAPINE
     Dosage: 300 MG, QD
     Route: 065

REACTIONS (7)
  - Mania [Recovered/Resolved]
  - Orthostatic hypotension [Recovered/Resolved]
  - Restlessness [Recovered/Resolved]
  - Live birth [Recovered/Resolved]
  - Exposure during pregnancy [Recovered/Resolved]
  - Therapeutic response decreased [Recovered/Resolved]
  - Drug ineffective [Recovered/Resolved]
